FAERS Safety Report 4447193-8 (Version None)
Quarter: 2004Q3

REPORT INFORMATION
  Report Type: 
  Country: None (occurrence: None)
  Receive Date: 20040813
  Receipt Date: 20040511
  Transmission Date: 20050211
  Serious: No
  Sender: FDA-Public Use
  Company Number: S04-USA-02996-02

PATIENT
  Age: 76 Year
  Sex: Female
  Weight: 52.1637 kg

DRUGS (12)
  1. NAMENDA [Suspect]
     Indication: DEMENTIA ALZHEIMER'S TYPE
     Dosage: 20 MG QD PO
     Route: 048
     Dates: start: 20040412, end: 20040510
  2. NAMENDA [Suspect]
     Indication: DEMENTIA ALZHEIMER'S TYPE
     Dosage: 5 MG QD PO
     Route: 048
     Dates: start: 20040322, end: 20040328
  3. NAMENDA [Suspect]
     Indication: DEMENTIA ALZHEIMER'S TYPE
     Dosage: 10 MG QD PO
     Route: 048
     Dates: start: 20040329, end: 20040404
  4. NAMENDA [Suspect]
     Indication: DEMENTIA ALZHEIMER'S TYPE
     Dosage: 15 MG QD PO
     Route: 048
     Dates: start: 20040405, end: 20040411
  5. TYLENOL [Concomitant]
  6. ARICEPT [Concomitant]
  7. CLARITIN [Concomitant]
  8. EFFEXOR [Concomitant]
  9. REMERON [Concomitant]
  10. MULTI-VITAMIN [Concomitant]
  11. SENOKOT [Concomitant]
  12. SEROQUEL [Concomitant]

REACTIONS (3)
  - ANGER [None]
  - CRYING [None]
  - FALL [None]
